FAERS Safety Report 15288587 (Version 1)
Quarter: 2018Q3

REPORT INFORMATION
  Report Type: Spontaneous
  Country: US (occurrence: US)
  Receive Date: 20180817
  Receipt Date: 20180817
  Transmission Date: 20181010
  Serious: No
  Sender: FDA-Public Use
  Company Number: US-GLAXOSMITHKLINE-US2018143996

PATIENT
  Age: 89 Year
  Sex: Female

DRUGS (1)
  1. PREVACID 24 HR [Suspect]
     Active Substance: LANSOPRAZOLE
     Indication: ABDOMINAL PAIN UPPER
     Dosage: UNK
     Dates: start: 20180301

REACTIONS (3)
  - Product use in unapproved indication [Unknown]
  - Limb discomfort [Unknown]
  - Gait inability [Unknown]

NARRATIVE: CASE EVENT DATE: 20180301
